FAERS Safety Report 23624301 (Version 4)
Quarter: 2025Q2

REPORT INFORMATION
  Report Type: Spontaneous
  Country: PK (occurrence: PK)
  Receive Date: 20240312
  Receipt Date: 20250421
  Transmission Date: 20250717
  Serious: Yes (Other)
  Sender: AMGEN
  Company Number: PK-PFIZER INC-2021269925

PATIENT
  Age: 36 Year
  Sex: Female
  Weight: 70 kg

DRUGS (15)
  1. ENBREL [Suspect]
     Active Substance: ETANERCEPT
     Indication: Arthritis
     Route: 058
  2. ENBREL [Suspect]
     Active Substance: ETANERCEPT
     Indication: Rheumatoid arthritis
     Route: 065
  3. ENBREL [Suspect]
     Active Substance: ETANERCEPT
     Route: 058
     Dates: start: 20210108
  4. ENBREL [Suspect]
     Active Substance: ETANERCEPT
     Dosage: 50 MG, MONTHLY
     Route: 058
     Dates: start: 20220104
  5. ENBREL [Suspect]
     Active Substance: ETANERCEPT
     Dosage: 50 MG, MONTHLY
     Route: 058
     Dates: start: 20220322
  6. HYDROXYCHLOROQUINE SULFATE [Concomitant]
     Active Substance: HYDROXYCHLOROQUINE SULFATE
     Dosage: 200 MILLIGRAM, QD (1+0, MORNING)
     Route: 065
  7. HYDROXYCHLOROQUINE SULFATE [Concomitant]
     Active Substance: HYDROXYCHLOROQUINE SULFATE
     Dosage: 200 MG, 2X/DAY (1+1 MORNING AND EVENING)
     Route: 065
  8. SULFASALAZINE [Concomitant]
     Active Substance: SULFASALAZINE
     Dosage: 500 MG, 2X/DAY(1+1 MORNING AND EVENING )
     Route: 065
  9. PROTHIADEN [Concomitant]
     Active Substance: DOTHIEPIN HYDROCHLORIDE
     Dosage: 25 MG, 1X/DAY(0+1 NIGHT)
     Route: 065
  10. Esso [Concomitant]
     Dosage: 40 MG, 1X/DAY(1+0 MORNING)
     Route: 065
  11. CHOLECALCIFEROL [Concomitant]
     Active Substance: CHOLECALCIFEROL
  12. OMEGA 3 [Concomitant]
     Active Substance: CAPSAICIN
     Dosage: UNK, 1X/DAY(1+0)
  13. Evion cr [Concomitant]
     Dosage: 400 1+0 MORNING
  14. Cac [Concomitant]
  15. Tofacinix [Concomitant]
     Dosage: 5MG 1+0 MORNING

REACTIONS (9)
  - Musculoskeletal discomfort [Unknown]
  - Arthralgia [Unknown]
  - Abdominal distension [Unknown]
  - Myalgia [Unknown]
  - Synovitis [Unknown]
  - Pyrexia [Unknown]
  - Joint range of motion decreased [Unknown]
  - Pain in extremity [Unknown]
  - Off label use [Unknown]
